FAERS Safety Report 25348797 (Version 2)
Quarter: 2025Q2

REPORT INFORMATION
  Report Type: Spontaneous
  Country: GB (occurrence: GB)
  Receive Date: 20250522
  Receipt Date: 20250523
  Transmission Date: 20250717
  Serious: Yes (Death, Other)
  Sender: PURDUE
  Company Number: GB-NAPPMUNDI-GBR-2025-0125738

PATIENT
  Age: 30 Year
  Sex: Male

DRUGS (1)
  1. MORPHINE SULFATE [Suspect]
     Active Substance: MORPHINE SULFATE
     Indication: Product used for unknown indication
     Route: 065

REACTIONS (3)
  - Respiratory failure [Fatal]
  - Labelled drug-food interaction issue [Unknown]
  - Alcohol use [Unknown]
